FAERS Safety Report 4978991-X (Version None)
Quarter: 2006Q2

REPORT INFORMATION
  Report Type: 
  Country: None (occurrence: None)
  Receive Date: 20060421
  Receipt Date: 20060410
  Transmission Date: 20061013
  Serious: Yes (Hospitalization, Other)
  Sender: FDA-Public Use
  Company Number: FR-BRISTOL-MYERS SQUIBB COMPANY-13344577

PATIENT
  Age: 75 Year
  Sex: Male
  Weight: 77 kg

DRUGS (2)
  1. COUMADIN [Suspect]
     Dates: end: 20060315
  2. CHEMOTHERAPY [Suspect]
     Indication: METASTASES TO BONE
     Dates: start: 20050101

REACTIONS (10)
  - ASTHENIA [None]
  - COAGULATION TIME PROLONGED [None]
  - DIARRHOEA [None]
  - GENERAL PHYSICAL HEALTH DETERIORATION [None]
  - INTERNATIONAL NORMALISED RATIO INCREASED [None]
  - NAUSEA [None]
  - NEUTROPENIA [None]
  - OVERDOSE [None]
  - PROTHROMBIN LEVEL DECREASED [None]
  - VOMITING [None]
